FAERS Safety Report 4973540-4 (Version None)
Quarter: 2006Q2

REPORT INFORMATION
  Report Type: 
  Country: None (occurrence: None)
  Receive Date: 20060413
  Receipt Date: 20060413
  Transmission Date: 20061013
  Serious: Yes (Other)
  Sender: FDA-Public Use
  Company Number: None

PATIENT
  Age: 34 Year
  Sex: Female
  Weight: 72.5755 kg

DRUGS (1)
  1. PROZAC [Suspect]
     Indication: DEPRESSION
     Dosage: 40MG  QD   (THERAPY DATES:  PRIOR TO THIS PRACTICE)

REACTIONS (2)
  - HEADACHE [None]
  - HYPERHIDROSIS [None]
